FAERS Safety Report 12238452 (Version 2)
Quarter: 2016Q3

REPORT INFORMATION
  Report Type: Spontaneous
  Country: US (occurrence: US)
  Receive Date: 20160405
  Receipt Date: 20160715
  Transmission Date: 20161109
  Serious: No
  Sender: FDA-Public Use
  Company Number: US-PFIZER INC-2016186130

PATIENT
  Age: 80 Year
  Sex: Male
  Weight: 59 kg

DRUGS (1)
  1. COLESTIPOL HCL [Suspect]
     Active Substance: COLESTIPOL HYDROCHLORIDE
     Indication: DYSPEPSIA
     Dosage: 1 G, 2X/DAY
     Route: 048
     Dates: start: 20160225

REACTIONS (4)
  - Foreign body [Unknown]
  - Product size issue [Unknown]
  - Dyspnoea [Unknown]
  - Product difficult to swallow [Unknown]
